FAERS Safety Report 9399838 (Version 2)
Quarter: 2013Q3

REPORT INFORMATION
  Report Type: Spontaneous
  Country: JP (occurrence: JP)
  Receive Date: 20130715
  Receipt Date: 20130911
  Transmission Date: 20140515
  Serious: Yes (Hospitalization)
  Sender: FDA-Public Use
  Company Number: PHHY2013JP051838

PATIENT
  Age: 86 Year
  Sex: Male

DRUGS (3)
  1. RIVASTIGMIN [Suspect]
     Indication: DEMENTIA ALZHEIMER^S TYPE
     Dosage: 4.5 MG, ONCE A DAY
     Route: 062
     Dates: start: 2013
  2. RIVASTIGMIN [Suspect]
     Dosage: 9 MG, ONCE A DAY
     Route: 062
     Dates: start: 2013
  3. RIVASTIGMIN [Suspect]
     Dosage: 13.5 MG, ONCE A DAY
     Route: 062
     Dates: start: 2013

REACTIONS (2)
  - Adverse event [Unknown]
  - Application site erythema [Recovering/Resolving]
